FAERS Safety Report 10187272 (Version 2)
Quarter: 2014Q2

REPORT INFORMATION
  Report Type: Report from Study
  Country: JM (occurrence: JM)
  Receive Date: 20140522
  Receipt Date: 20140603
  Transmission Date: 20141212
  Serious: Yes (Death, Hospitalization, Other)
  Sender: FDA-Public Use
  Company Number: PHHY2014JM061527

PATIENT
  Sex: Female
  Weight: 41 kg

DRUGS (2)
  1. GLIVEC [Suspect]
     Indication: GASTROINTESTINAL STROMAL TUMOUR
     Dosage: 800 MG, UNK
     Dates: start: 201202
  2. FOSAMAX [Concomitant]
     Indication: OSTEOPOROSIS
     Dosage: UNK UKN, UNK

REACTIONS (7)
  - Shock [Fatal]
  - Dehydration [Fatal]
  - Hyperkalaemia [Unknown]
  - Renal impairment [Unknown]
  - Diarrhoea [Unknown]
  - Metabolic acidosis [Unknown]
  - No therapeutic response [Unknown]
